FAERS Safety Report 7097431-0 (Version None)
Quarter: 2010Q4

REPORT INFORMATION
  Report Type: 
  Country: None (occurrence: None)
  Receive Date: 20101111
  Receipt Date: 20101101
  Transmission Date: 20110411
  Serious: Yes (Death, Hospitalization)
  Sender: FDA-Public Use
  Company Number: US-ELI_LILLY_AND_COMPANY-US201011000827

PATIENT
  Age: 63 Year
  Sex: Male

DRUGS (3)
  1. CIXUTUMUMAB [Suspect]
     Indication: PANCREATIC CARCINOMA METASTATIC
     Dosage: 6 MG/KG, UNK
     Route: 042
     Dates: start: 20100902, end: 20101015
  2. GEMCITABINE HCL [Suspect]
     Indication: PANCREATIC CARCINOMA METASTATIC
     Dosage: 1000 MG/M2, UNK
     Route: 042
     Dates: start: 20100902, end: 20101015
  3. ERLOTINIB HYDROCHLORIDE [Suspect]
     Indication: PANCREATIC CARCINOMA METASTATIC
     Dosage: 100 MG, DAILY (1/D)
     Route: 048
     Dates: start: 20100902, end: 20101020

REACTIONS (1)
  - PNEUMONIA [None]
